FAERS Safety Report 14230417 (Version 5)
Quarter: 2023Q2

REPORT INFORMATION
  Report Type: Spontaneous
  Country: US (occurrence: US)
  Receive Date: 20171128
  Receipt Date: 20230518
  Transmission Date: 20230722
  Serious: Yes (Other)
  Sender: FDA-Public Use
  Company Number: US-PFIZER INC-2017503340

PATIENT
  Age: 67 Year
  Sex: Male

DRUGS (5)
  1. METHOTREXATE SODIUM [Suspect]
     Active Substance: METHOTREXATE SODIUM
     Indication: Post transplant lymphoproliferative disorder
     Dosage: 8200 MG, DAILY (HIGH-DOSE)
  2. RITUXIMAB [Concomitant]
     Active Substance: RITUXIMAB
     Indication: Post transplant lymphoproliferative disorder
     Dosage: UNK
  3. CYCLOSPORINE [Concomitant]
     Active Substance: CYCLOSPORINE
     Indication: Heart transplant
     Dosage: UNK
  4. SODIUM BICARBONATE [Concomitant]
     Active Substance: SODIUM BICARBONATE
     Dosage: UNK
     Route: 042
  5. LEUCOVORIN [Concomitant]
     Active Substance: LEUCOVORIN
     Dosage: UNK

REACTIONS (1)
  - Nephropathy toxic [Recovering/Resolving]
